FAERS Safety Report 14587215 (Version 3)
Quarter: 2018Q4

REPORT INFORMATION
  Report Type: Spontaneous
  Country: PT (occurrence: PT)
  Receive Date: 20180301
  Receipt Date: 20181022
  Transmission Date: 20190204
  Serious: Yes (Other)
  Sender: FDA-Public Use
  Company Number: PT-PFIZER INC-2018082162

PATIENT
  Sex: Female

DRUGS (5)
  1. SIMVASTATIN. [Concomitant]
     Active Substance: SIMVASTATIN
     Dosage: 20 MG, 1X/DAY
     Route: 065
     Dates: start: 2011
  2. BISOPROLOL [Concomitant]
     Active Substance: BISOPROLOL
     Dosage: 5 MG, 1X/DAY
     Route: 065
     Dates: start: 2011
  3. EFFEXOR XR [Suspect]
     Active Substance: VENLAFAXINE HYDROCHLORIDE
     Indication: MAJOR DEPRESSION
     Dosage: 150 MG, 1X/DAY
     Route: 065
     Dates: start: 20171115
  4. PLAVIX [Concomitant]
     Active Substance: CLOPIDOGREL BISULFATE
     Dosage: 50 MG, 1X/DAY
     Route: 065
     Dates: start: 2011
  5. ASPIRINA [Concomitant]
     Active Substance: ASPIRIN
     Dosage: 100 MG, 1X/DAY
     Route: 065
     Dates: start: 2011

REACTIONS (14)
  - Insomnia [Unknown]
  - Tremor [Unknown]
  - Dysphonia [Unknown]
  - Delirium [Unknown]
  - Agitation [Unknown]
  - Aggression [Unknown]
  - Blood pressure increased [Unknown]
  - Dyspnoea [Unknown]
  - Rosacea [Unknown]
  - Impulsive behaviour [Unknown]
  - Nightmare [Unknown]
  - Arrhythmia [Unknown]
  - Erythema [Unknown]
  - Tachycardia [Unknown]

NARRATIVE: CASE EVENT DATE: 2018
